FAERS Safety Report 6035743-X (Version None)
Quarter: 2009Q1

REPORT INFORMATION
  Report Type: 
  Country: None (occurrence: None)
  Receive Date: 20090113
  Receipt Date: 20090105
  Transmission Date: 20090719
  Serious: Yes (Hospitalization, Other)
  Sender: FDA-Public Use
  Company Number: BR-PFIZER INC-2009152530

PATIENT

DRUGS (18)
  1. LIPITOR [Suspect]
     Indication: DYSLIPIDAEMIA
     Dosage: 40 MG, 1X/DAY
     Route: 048
     Dates: end: 20081028
  2. METRONIDAZOLE [Concomitant]
     Dosage: UNK
  3. ROCEPHIN [Concomitant]
     Dosage: UNK
  4. DIGESAN [Concomitant]
     Dosage: UNK
  5. PANTOZOL [Concomitant]
     Dosage: UNK
  6. ENOXAPARIN SODIUM [Concomitant]
     Dosage: UNK
  7. CARVEDILOL [Concomitant]
     Dosage: UNK
  8. VALSARTAN [Concomitant]
     Dosage: UNK
  9. ZELMAC [Concomitant]
     Dosage: UNK
  10. NOVALGINA [Concomitant]
  11. VITAMIN K [Concomitant]
     Dosage: UNK
  12. ZOLOFT [Concomitant]
     Dosage: UNK
  13. LEXOTAN [Concomitant]
     Dosage: UNK
  14. TRAMADOL HCL [Concomitant]
     Dosage: UNK
  15. LASIX [Concomitant]
     Dosage: UNK
  16. NEOSTIGMINE [Concomitant]
     Dosage: UNK
     Dates: end: 20081028
  17. COREG [Concomitant]
     Dosage: UNK
  18. INSULIN [Concomitant]
     Dosage: UNK

REACTIONS (2)
  - BLADDER HYPERTROPHY [None]
  - LIPASE INCREASED [None]
